FAERS Safety Report 4996184-7 (Version None)
Quarter: 2006Q2

REPORT INFORMATION
  Report Type: 
  Country: None (occurrence: None)
  Receive Date: 20060504
  Receipt Date: 20060421
  Transmission Date: 20061013
  Serious: Yes (Hospitalization)
  Sender: FDA-Public Use
  Company Number: 2006036099

PATIENT
  Age: 66 Year
  Sex: Male

DRUGS (1)
  1. SUNITINIB MALEATE [Suspect]
     Indication: METASTATIC RENAL CELL CARCINOMA
     Dosage: 50 MG (50 MG 1 IN 1 D) ORAL
     Route: 048
     Dates: start: 20060217

REACTIONS (2)
  - FALL [None]
  - HYPOGLYCAEMIA [None]
